FAERS Safety Report 21862061 (Version 1)
Quarter: 2023Q1

REPORT INFORMATION
  Report Type: Report from Study
  Country: US (occurrence: US)
  Receive Date: 20230113
  Receipt Date: 20230113
  Transmission Date: 20230418
  Serious: Yes (Death, Hospitalization, Other)
  Sender: FDA-Public Use
  Company Number: US-AMGEN-USASL2022157886

PATIENT
  Age: 57 Year
  Sex: Male
  Weight: 85.2 kg

DRUGS (1)
  1. ENBREL [Suspect]
     Active Substance: ETANERCEPT
     Indication: Product used for unknown indication
     Dosage: 25 MILLIGRAM, 2 TIMES/WK
     Route: 058

REACTIONS (15)
  - Death [Fatal]
  - Immunosuppression [Unknown]
  - Sepsis [Unknown]
  - Ascites [Unknown]
  - Hepatic cirrhosis [Unknown]
  - Cardiomegaly [Unknown]
  - Hepatic encephalopathy [Unknown]
  - Spinal compression fracture [Unknown]
  - Pleural effusion [Unknown]
  - Varicose vein [Unknown]
  - Spinal osteoarthritis [Unknown]
  - Gastrooesophageal reflux disease [Unknown]
  - Osteoporosis [Unknown]
  - Primary biliary cholangitis [Unknown]
  - Hypertension [Unknown]

NARRATIVE: CASE EVENT DATE: 20090812
